FAERS Safety Report 9512137 (Version 1)
Quarter: 2013Q1

REPORT INFORMATION
  Report Type: Spontaneous
  Country: US (occurrence: None)
  Receive Date: 20130305
  Receipt Date: 20130305
  Transmission Date: 20140127
  Serious: Yes (Other)
  Sender: FDA-Public Use
  Company Number: 163-21880-12092291

PATIENT
  Sex: Male

DRUGS (11)
  1. REVLIMID [Suspect]
     Indication: PLASMA CELL MYELOMA
     Dosage: 21 IN 28 D
     Route: 048
     Dates: start: 20120802
  2. DEXAMETHASONE [Suspect]
     Indication: PLASMA CELL MYELOMA
  3. LIPITOR (ATORVASTATIN) (UNKNOWN) [Concomitant]
  4. FINASTERIDE (FINASTERIDE) (UNKNOWN) [Concomitant]
  5. VENTOLIN (SALBUTAMOL) (UNKNOWN) [Concomitant]
  6. ADVAIR (SERETIDE MITE) (UNKNOWN) [Concomitant]
  7. OXYCODONE (OXYCODONE) (OXYCODONE) [Concomitant]
  8. OXYCONTIN (OXYCODONE HYDROCHLORIDE) [Concomitant]
  9. SPIRIVA (TIOTROPIUM BROMIDE) (UNKNOWN) [Concomitant]
  10. OXYCONTIN (OXYCODONE HYDROCHLORIDE) UNKNOWN [Concomitant]
  11. ASPIRIN (ACETYLSALICYLIC ACID) (UNKNOWN) (ACETYLSALICYLIC ACID) [Concomitant]

REACTIONS (1)
  - Bone disorder [None]
